FAERS Safety Report 10499438 (Version 3)
Quarter: 2014Q4

REPORT INFORMATION
  Report Type: Spontaneous
  Country: FI (occurrence: FI)
  Receive Date: 20141006
  Receipt Date: 20141029
  Transmission Date: 20150528
  Serious: Yes (Hospitalization)
  Sender: FDA-Public Use
  Company Number: FI-ABBVIE-14P-055-1291432-00

PATIENT
  Sex: Male

DRUGS (1)
  1. SODIUM VALPROATE [Suspect]
     Active Substance: VALPROATE SODIUM
     Indication: EPILEPSY
     Route: 065

REACTIONS (12)
  - Sinus tachycardia [Recovered/Resolved]
  - Pneumonia aspiration [Recovered/Resolved]
  - Hypernatraemia [Recovered/Resolved]
  - Areflexia [Recovered/Resolved]
  - Hyporeflexia [Recovered/Resolved]
  - Loss of consciousness [Recovered/Resolved]
  - Muscle twitching [Recovered/Resolved]
  - Brain oedema [Recovered/Resolved]
  - Electroencephalogram abnormal [Recovered/Resolved]
  - Hyperammonaemia [Recovered/Resolved]
  - Miosis [Recovered/Resolved]
  - Overdose [Recovered/Resolved]
